FAERS Safety Report 10723398 (Version 1)
Quarter: 2015Q1

REPORT INFORMATION
  Report Type: Spontaneous
  Country: DK (occurrence: DK)
  Receive Date: 20150120
  Receipt Date: 20150120
  Transmission Date: 20150721
  Serious: Yes (Hospitalization)
  Sender: FDA-Public Use
  Company Number: PHHY2015DK003717

PATIENT
  Age: 75 Year
  Sex: Male

DRUGS (2)
  1. METHOTREXATE [Suspect]
     Active Substance: METHOTREXATE
     Indication: RHEUMATOID ARTHRITIS
     Dosage: 10 MG, QW
     Route: 048
     Dates: start: 201110, end: 201402
  2. PREDNISOLON [Concomitant]
     Active Substance: PREDNISOLONE
     Indication: MYALGIA
     Route: 065
     Dates: start: 20110430

REACTIONS (4)
  - Pulmonary fibrosis [Not Recovered/Not Resolved]
  - Dyspnoea exertional [Not Recovered/Not Resolved]
  - Scintillating scotoma [Unknown]
  - Facial paresis [Unknown]

NARRATIVE: CASE EVENT DATE: 20121126
